FAERS Safety Report 19409080 (Version 1)
Quarter: 2021Q2

REPORT INFORMATION
  Report Type: Spontaneous
  Country: JP (occurrence: JP)
  Receive Date: 20210613
  Receipt Date: 20210613
  Transmission Date: 20210717
  Serious: Yes (Other)
  Sender: FDA-Public Use
  Company Number: JP-BRISTOL-MYERS SQUIBB COMPANY-BMS-2021-055211

PATIENT
  Age: 66 Year
  Sex: Female
  Weight: 36 kg

DRUGS (1)
  1. ORENCIA [Suspect]
     Active Substance: ABATACEPT
     Indication: RHEUMATOID ARTHRITIS
     Dosage: UNAVAILABLE
     Route: 065
     Dates: start: 2020, end: 202104

REACTIONS (9)
  - Chills [Unknown]
  - Arthralgia [Unknown]
  - Gastric ulcer [Unknown]
  - Malaise [Unknown]
  - Fall [Unknown]
  - Abdominal wall mass [Unknown]
  - Tooth loss [Unknown]
  - Seizure [Unknown]
  - Bone density decreased [Unknown]

NARRATIVE: CASE EVENT DATE: 202007
